FAERS Safety Report 15886916 (Version 1)
Quarter: 2019Q1

REPORT INFORMATION
  Report Type: Spontaneous
  Country: AU (occurrence: AU)
  Receive Date: 20190130
  Receipt Date: 20190130
  Transmission Date: 20190417
  Serious: Yes (Other)
  Sender: FDA-Public Use
  Company Number: AU-MICRO LABS LIMITED-ML2019-00114

PATIENT
  Age: 82 Year
  Sex: Male

DRUGS (3)
  1. PARACETAMOL [Suspect]
     Active Substance: ACETAMINOPHEN
  2. CEFTRIAXONE. [Suspect]
     Active Substance: CEFTRIAXONE
  3. AMOXICILLIN/CLAVULANIC ACID [Suspect]
     Active Substance: AMOXICILLIN\CLAVULANIC ACID

REACTIONS (3)
  - Hepatitis [Unknown]
  - Erythema multiforme [Unknown]
  - Bone marrow failure [Unknown]
